FAERS Safety Report 7416038-6 (Version None)
Quarter: 2011Q2

REPORT INFORMATION
  Report Type: 
  Country: None (occurrence: None)
  Receive Date: 20110406
  Receipt Date: 20110323
  Transmission Date: 20111010
  Serious: Yes (Hospitalization)
  Sender: FDA-Public Use
  Company Number: 2011MA002998

PATIENT
  Sex: Male

DRUGS (9)
  1. CITALOPRAM HYDROBROMIDE [Suspect]
     Indication: DEPRESSION
     Dosage: 20 MG;QD;PO
     Route: 048
     Dates: start: 20110214, end: 20110221
  2. MIRTAZAPINE [Concomitant]
  3. PARAFFIN [Concomitant]
  4. NEFOPAM [Concomitant]
  5. ISOPROPYL MYRISTATE [Concomitant]
  6. METFORMIN [Concomitant]
  7. ACETAMINOPHEN AND CODEINE PHOSPHATE [Concomitant]
  8. FUROSEMIDE [Concomitant]
  9. RAMIPRIL [Concomitant]

REACTIONS (1)
  - ANGLE CLOSURE GLAUCOMA [None]
